FAERS Safety Report 20112625 (Version 1)
Quarter: 2021Q4

REPORT INFORMATION
  Report Type: Spontaneous
  Country: CN (occurrence: CN)
  Receive Date: 20211125
  Receipt Date: 20211125
  Transmission Date: 20220303
  Serious: Yes (Other)
  Sender: FDA-Public Use
  Company Number: CN-BAXTER-2021BAX036819

PATIENT
  Age: 57 Year
  Sex: Male
  Weight: 62.5 kg

DRUGS (5)
  1. MANNITOL [Suspect]
     Active Substance: MANNITOL
     Indication: Angle closure glaucoma
     Route: 041
     Dates: start: 20211027, end: 20211027
  2. SODIUM CHLORIDE [Suspect]
     Active Substance: SODIUM CHLORIDE
     Indication: Medication dilution
     Dosage: 0.9% SODIUM CHLORIDE INJECTION 250 ML + VITAMIN B6 INJECTION 0.2 G
     Route: 041
     Dates: start: 20211023, end: 20211028
  3. SODIUM CHLORIDE [Suspect]
     Active Substance: SODIUM CHLORIDE
     Dosage: 0.9% SODIUM CHLORIDE INJECTION 250 ML + DEXAMETHASONE SODIUM PHOSPHATE INJECTION
     Route: 041
     Dates: start: 20211025, end: 20211028
  4. VITAMIN B6 [Suspect]
     Active Substance: PYRIDOXINE HYDROCHLORIDE
     Indication: Angle closure glaucoma
     Dosage: 0.9% SODIUM CHLORIDE INJECTION 250 ML + VITAMIN B6 INJECTION 0.2 G
     Route: 041
     Dates: start: 20211023, end: 20211028
  5. DEXAMETHASONE SODIUM PHOSPHATE [Suspect]
     Active Substance: DEXAMETHASONE SODIUM PHOSPHATE
     Indication: Angle closure glaucoma
     Dosage: 0.9% SODIUM CHLORIDE NEEDLE 250 ML + DEXAMETHASONE NEEDLE 10 MG
     Route: 041
     Dates: start: 20211025, end: 20211028

REACTIONS (1)
  - Infusion site pruritus [Recovered/Resolved]

NARRATIVE: CASE EVENT DATE: 20211027
